FAERS Safety Report 9884633 (Version 2)
Quarter: 2014Q1

REPORT INFORMATION
  Report Type: Spontaneous
  Country: US (occurrence: US)
  Receive Date: 20140210
  Receipt Date: 20140210
  Transmission Date: 20141002
  Serious: No
  Sender: FDA-Public Use
  Company Number: US-ALLERGAN-1317880US

PATIENT
  Sex: Female

DRUGS (3)
  1. BOTOX [Suspect]
     Indication: SKIN WRINKLING
     Dosage: UNK, SINGLE
  2. BOTOX [Suspect]
     Indication: BLEPHAROSPASM
     Dosage: UNK
     Dates: start: 20131030, end: 20131030
  3. BOTOX [Suspect]
     Dosage: 9 UNITS, UNK
     Dates: start: 20131115, end: 20131115

REACTIONS (1)
  - Drug ineffective [Unknown]
